FAERS Safety Report 4378194-6 (Version None)
Quarter: 2004Q2

REPORT INFORMATION
  Report Type: 
  Country: None (occurrence: None)
  Receive Date: 20040609
  Receipt Date: 20040527
  Transmission Date: 20050107
  Serious: Yes (Death)
  Sender: FDA-Public Use
  Company Number: 163-20785-04030421

PATIENT
  Age: 62 Year
  Sex: Female

DRUGS (1)
  1. THALOMID [Suspect]
     Indication: OVARIAN CANCER
     Dosage: 100 MG, QD, ORAL
     Route: 048
     Dates: start: 20031212, end: 20040309

REACTIONS (3)
  - HEPATIC FAILURE [None]
  - MALIGNANT NEOPLASM PROGRESSION [None]
  - OVARIAN CANCER [None]
